FAERS Safety Report 7417960-7 (Version None)
Quarter: 2011Q2

REPORT INFORMATION
  Report Type: 
  Country: None (occurrence: None)
  Receive Date: 20110412
  Receipt Date: 20110412
  Transmission Date: 20111010
  Serious: Yes (Hospitalization)
  Sender: FDA-Public Use
  Company Number: None

PATIENT
  Age: 46 Year
  Sex: Female
  Weight: 107.8 kg

DRUGS (12)
  1. VITAMIN D [Concomitant]
  2. ACTOS [Concomitant]
  3. PAMELOR [Concomitant]
  4. GABAPENTIN [Concomitant]
  5. PHENERGAN HCL [Concomitant]
  6. PIOGLITAZONE [Suspect]
     Dosage: 1 1 BY MOUGH
     Route: 048
     Dates: start: 20100719
  7. OXYCODONE [Concomitant]
  8. LOVASTATIN [Concomitant]
  9. NEXIUM [Concomitant]
  10. METFORMIN [Concomitant]
  11. CALCIUM [Concomitant]
  12. SYNTHROID [Concomitant]

REACTIONS (3)
  - DECREASED APPETITE [None]
  - ABDOMINAL PAIN [None]
  - NAUSEA [None]
